FAERS Safety Report 21450229 (Version 3)
Quarter: 2023Q1

REPORT INFORMATION
  Report Type: Report from Study
  Country: CA (occurrence: CA)
  Receive Date: 20221013
  Receipt Date: 20230119
  Transmission Date: 20230418
  Serious: Yes (Hospitalization, Other)
  Sender: FDA-Public Use
  Company Number: CA-JNJFOC-20220947115

PATIENT
  Age: 35 Year
  Sex: Female
  Weight: 56 kg

DRUGS (1)
  1. REMICADE [Suspect]
     Active Substance: INFLIXIMAB
     Indication: Crohn^s disease
     Dosage: LAST DOSE ON 21-SEP-2022.  STOPPED REMICADE AND PRESCRIBED STELARA.
     Route: 041
     Dates: start: 20210413

REACTIONS (8)
  - Oral herpes [Recovering/Resolving]
  - Herpes zoster [Recovering/Resolving]
  - Eczema herpeticum [Unknown]
  - Lupus-like syndrome [Recovering/Resolving]
  - Crohn^s disease [Unknown]
  - Deformity [Unknown]
  - Weight decreased [Unknown]
  - Decreased immune responsiveness [Unknown]

NARRATIVE: CASE EVENT DATE: 20220922
